FAERS Safety Report 9946676 (Version 1)
Quarter: 2014Q1

REPORT INFORMATION
  Report Type: Report from Study
  Country: US (occurrence: US)
  Receive Date: 20140303
  Receipt Date: 20140303
  Transmission Date: 20141002
  Serious: No
  Sender: FDA-Public Use
  Company Number: US-ABBVIE-13P-163-1063214-00

PATIENT
  Age: 49 Year
  Sex: Female

DRUGS (7)
  1. HUMIRA [Suspect]
     Indication: CROHN^S DISEASE
     Route: 058
     Dates: start: 20121101
  2. LISINOPRIL [Concomitant]
     Indication: HYPERTENSION
     Dosage: 20 MG DAILY
  3. KLOR-CON [Concomitant]
     Indication: BLOOD POTASSIUM DECREASED
     Dosage: 10 MEQ DAILY
  4. TRAZODONE [Concomitant]
     Indication: INSOMNIA
     Dosage: 100 MG DAILY
  5. RANITIDINE [Concomitant]
     Indication: GASTROOESOPHAGEAL REFLUX DISEASE
  6. AZATHIOPRINE [Concomitant]
     Indication: CROHN^S DISEASE
     Dosage: (X5) 50 MG DAILY
  7. ULTRAM [Concomitant]
     Indication: BACK PAIN

REACTIONS (1)
  - Weight increased [Unknown]
